FAERS Safety Report 6209956-8 (Version None)
Quarter: 2009Q2

REPORT INFORMATION
  Report Type: 
  Country: None (occurrence: None)
  Receive Date: 20090527
  Receipt Date: 20090519
  Transmission Date: 20091009
  Serious: Yes (Other)
  Sender: FDA-Public Use
  Company Number: PAR_02993_2009

PATIENT
  Age: 3 Day
  Sex: Female
  Weight: 1.2 kg

DRUGS (4)
  1. IBUPROFEN [Suspect]
     Indication: PATENT DUCTUS ARTERIOSUS
     Dosage: (5 MG/KG QD ORAL) (10 MG/KG 1X)
     Route: 048
  2. IBUPROFEN [Suspect]
     Indication: PROPHYLAXIS
     Dosage: (5 MG/KG QD ORAL) (10 MG/KG 1X)
     Route: 048
  3. IBUPROFEN [Suspect]
     Indication: PATENT DUCTUS ARTERIOSUS
     Dosage: (5 MG/KG QD ORAL) (10 MG/KG 1X)
     Route: 048
  4. IBUPROFEN [Suspect]
     Indication: PROPHYLAXIS
     Dosage: (5 MG/KG QD ORAL) (10 MG/KG 1X)
     Route: 048

REACTIONS (2)
  - INTESTINAL PERFORATION [None]
  - SKIN DISCOLOURATION [None]
